FAERS Safety Report 7400493-1 (Version None)
Quarter: 2011Q2

REPORT INFORMATION
  Report Type: 
  Country: None (occurrence: None)
  Receive Date: 20110407
  Receipt Date: 20110328
  Transmission Date: 20111010
  Serious: Yes (Death, Hospitalization)
  Sender: FDA-Public Use
  Company Number: DE-PFIZER INC-2011056376

PATIENT
  Age: 71 Year
  Sex: Female
  Weight: 98 kg

DRUGS (5)
  1. FLUOROURACIL [Suspect]
     Indication: COLORECTAL CANCER METASTATIC
     Dosage: 400 MG/M2, EVERY 2 WEEKS
     Route: 040
     Dates: start: 20101214, end: 20110222
  2. ERBITUX [Suspect]
     Indication: COLORECTAL CANCER METASTATIC
     Dosage: 250 MG/M2, WEEKLY
     Route: 042
     Dates: start: 20101214, end: 20110301
  3. FOLINIC ACID [Suspect]
     Indication: COLORECTAL CANCER METASTATIC
     Dosage: 400 MG/M2, EVERY 2 WEEKS
     Route: 042
     Dates: start: 20101214, end: 20110222
  4. IRINOTECAN HCL [Suspect]
     Indication: COLORECTAL CANCER METASTATIC
     Dosage: 180 MG/M2, EVERY 2 WEEKS
     Route: 042
     Dates: start: 20101214, end: 20110222
  5. FLUOROURACIL [Suspect]
     Dosage: 2400 MG/M2
     Route: 042
     Dates: start: 20101214, end: 20110224

REACTIONS (2)
  - ILEUS [None]
  - PNEUMOCYSTIS JIROVECI PNEUMONIA [None]
